FAERS Safety Report 25086575 (Version 3)
Quarter: 2025Q3

REPORT INFORMATION
  Report Type: Spontaneous
  Country: US (occurrence: US)
  Receive Date: 20250317
  Receipt Date: 20250828
  Transmission Date: 20251021
  Serious: No
  Sender: BIOGEN
  Company Number: US-BIOGEN-2024BI01294080

PATIENT
  Age: 28 Year
  Sex: Male

DRUGS (8)
  1. SKYCLARYS [Suspect]
     Active Substance: OMAVELOXOLONE
     Indication: Friedreich^s ataxia
     Dosage: 1 CAPSULE DAILY FOR TWO WEEKS
     Route: 050
     Dates: start: 20241212
  2. SKYCLARYS [Suspect]
     Active Substance: OMAVELOXOLONE
     Dosage: THEN 2 CAPSULES DAILY FOR TWO WEEKS
     Route: 050
  3. SKYCLARYS [Suspect]
     Active Substance: OMAVELOXOLONE
     Dosage: THEN 3 CAPSULES DAILY
     Route: 050
  4. SKYCLARYS [Suspect]
     Active Substance: OMAVELOXOLONE
     Route: 050
     Dates: start: 20250122
  5. SKYCLARYS [Suspect]
     Active Substance: OMAVELOXOLONE
     Route: 050
     Dates: start: 20250120
  6. ERGOCALCIFEROL [Concomitant]
     Active Substance: ERGOCALCIFEROL
     Indication: Product used for unknown indication
     Route: 050
     Dates: start: 20240730
  7. MOTRIN [Concomitant]
     Active Substance: IBUPROFEN
     Indication: Pain
     Dosage: AS NEEDED
     Route: 050
  8. Propalonol (inderal) [Concomitant]
     Indication: Product used for unknown indication
     Route: 050

REACTIONS (6)
  - Prescribed underdose [Unknown]
  - Gait inability [Unknown]
  - Gait disturbance [Unknown]
  - Drug ineffective [Unknown]
  - Liver disorder [Unknown]
  - Ataxia [Unknown]

NARRATIVE: CASE EVENT DATE: 20241212
